FAERS Safety Report 5444002-5 (Version None)
Quarter: 2007Q3

REPORT INFORMATION
  Report Type: 
  Country: None (occurrence: None)
  Receive Date: 20070905
  Receipt Date: 20070829
  Transmission Date: 20080115
  Serious: Yes (Hospitalization)
  Sender: FDA-Public Use
  Company Number: US-GENENTECH-246161

PATIENT
  Sex: Male
  Weight: 64.5 kg

DRUGS (14)
  1. BEVACIZUMAB [Suspect]
     Indication: NON-SMALL CELL LUNG CANCER
     Dosage: 15 MG/KG, Q3W
     Route: 042
     Dates: start: 20070726
  2. ERLOTINIB [Suspect]
     Indication: NON-SMALL CELL LUNG CANCER
     Dosage: 150 MG, UNK
     Route: 048
     Dates: start: 20070726
  3. PEMETREXED [Suspect]
     Indication: NON-SMALL CELL LUNG CANCER
     Dosage: 910 MG, Q3W
     Route: 042
     Dates: start: 20070726
  4. PROSCAR [Concomitant]
     Indication: DRUG USE FOR UNKNOWN INDICATION
     Dates: start: 19920101
  5. INDAPAMIDE [Concomitant]
     Indication: DRUG USE FOR UNKNOWN INDICATION
     Dates: start: 19940101
  6. LISINOPRIL [Concomitant]
     Indication: DRUG USE FOR UNKNOWN INDICATION
     Dosage: UNK, UNK
     Dates: start: 19950101
  7. TERAZOSIN HCL [Concomitant]
     Indication: DRUG USE FOR UNKNOWN INDICATION
     Dates: start: 19950101
  8. LIPITOR [Concomitant]
     Indication: DRUG USE FOR UNKNOWN INDICATION
     Dates: start: 19990101
  9. POTASSIUM CHLORIDE [Concomitant]
     Indication: DRUG USE FOR UNKNOWN INDICATION
     Dates: start: 20020101
  10. VITAMIN B-12 [Concomitant]
     Dates: start: 20070701
  11. FOLIC ACID [Concomitant]
     Indication: DRUG USE FOR UNKNOWN INDICATION
     Dates: start: 20070701
  12. DEXAMETHASONE 0.5MG TAB [Concomitant]
     Indication: DRUG USE FOR UNKNOWN INDICATION
     Dates: start: 20070701
  13. COMPAZINE [Concomitant]
     Indication: DRUG USE FOR UNKNOWN INDICATION
  14. MEGACE ES [Concomitant]
     Indication: DRUG USE FOR UNKNOWN INDICATION

REACTIONS (6)
  - ANOREXIA [None]
  - DEHYDRATION [None]
  - FATIGUE [None]
  - HYPERNATRAEMIA [None]
  - HYPOKALAEMIA [None]
  - WEIGHT DECREASED [None]
